FAERS Safety Report 24676381 (Version 4)
Quarter: 2025Q4

REPORT INFORMATION
  Report Type: Spontaneous
  Country: US (occurrence: US)
  Receive Date: 20241128
  Receipt Date: 20251107
  Transmission Date: 20260118
  Serious: No
  Sender: SANOFI AVENTIS
  Company Number: US-SA-2024SA346955

PATIENT
  Age: 38 Year
  Sex: Female

DRUGS (1)
  1. DUPIXENT [Suspect]
     Active Substance: DUPILUMAB
     Indication: Dermatitis atopic
     Dosage: 300 MG, QOW
     Route: 058
     Dates: start: 20220315

REACTIONS (9)
  - Dermatitis atopic [Unknown]
  - Pruritus [Unknown]
  - Erythema [Unknown]
  - Skin exfoliation [Unknown]
  - Dry skin [Unknown]
  - Skin fissures [Unknown]
  - Rebound effect [Unknown]
  - Product dose omission issue [Unknown]
  - Therapeutic response shortened [Unknown]
